FAERS Safety Report 4937321-X (Version None)
Quarter: 2006Q1

REPORT INFORMATION
  Report Type: 
  Country: None (occurrence: None)
  Receive Date: 20060309
  Receipt Date: 20060302
  Transmission Date: 20060701
  Serious: Yes (Death)
  Sender: FDA-Public Use
  Company Number: PHBS2006BR03550

PATIENT
  Sex: Female

DRUGS (1)
  1. VOLTAREN [Suspect]
     Indication: RENAL PAIN
     Route: 030

REACTIONS (4)
  - HYPOKINESIA [None]
  - INJECTION SITE ABSCESS [None]
  - NECROTISING FASCIITIS [None]
  - SEPSIS [None]
